FAERS Safety Report 6977553-2 (Version None)
Quarter: 2010Q3

REPORT INFORMATION
  Report Type: 
  Country: None (occurrence: None)
  Receive Date: 20100912
  Receipt Date: 20100901
  Transmission Date: 20110219
  Serious: Yes (Hospitalization)
  Sender: FDA-Public Use
  Company Number: JP-JNJFOC-20100902164

PATIENT
  Age: 62 Year
  Sex: Male
  Weight: 67 kg

DRUGS (7)
  1. REMICADE [Suspect]
     Indication: PUSTULAR PSORIASIS
     Route: 042
  2. REMICADE [Suspect]
     Route: 042
  3. REMICADE [Suspect]
     Route: 042
  4. MYSER [Concomitant]
     Indication: PUSTULAR PSORIASIS
  5. MYSER [Concomitant]
  6. ISCOTIN [Concomitant]
     Indication: ANTIBIOTIC PROPHYLAXIS
     Route: 048
  7. ETRETINATE [Concomitant]
     Indication: PUSTULAR PSORIASIS
     Route: 048

REACTIONS (1)
  - GASTROINTESTINAL CANCER METASTATIC [None]
